FAERS Safety Report 24199386 (Version 2)
Quarter: 2024Q3

REPORT INFORMATION
  Report Type: Spontaneous
  Country: DE (occurrence: DE)
  Receive Date: 20240812
  Receipt Date: 20240913
  Transmission Date: 20241017
  Serious: Yes (Congenital Anomaly, Other)
  Sender: LUPIN
  Company Number: DE-LUPIN PHARMACEUTICALS INC.-2024-07704

PATIENT

DRUGS (2)
  1. LAMOTRIGINE [Suspect]
     Active Substance: LAMOTRIGINE
     Indication: Epilepsy
     Dosage: UNK
     Route: 064
  2. LACOSAMIDE [Suspect]
     Active Substance: LACOSAMIDE
     Indication: Epilepsy
     Dosage: UNK
     Route: 064

REACTIONS (3)
  - Coarctation of the aorta [Unknown]
  - Atrial septal defect [Unknown]
  - Foetal exposure during pregnancy [Unknown]
